FAERS Safety Report 7234205-1 (Version None)
Quarter: 2010Q4

REPORT INFORMATION
  Report Type: 
  Country: None (occurrence: None)
  Receive Date: 20101130
  Receipt Date: 20090123
  Transmission Date: 20110411
  Serious: No
  Sender: FDA-Public Use
  Company Number: 2009-190293-NL

PATIENT
  Age: 25 Year
  Sex: Female
  Weight: 77.6 kg

DRUGS (1)
  1. NUVARING [Suspect]
     Indication: CONTRACEPTION
     Dosage: VAG
     Route: 067

REACTIONS (2)
  - MEDICAL DEVICE DISCOMFORT [None]
  - UNINTENDED PREGNANCY [None]
